FAERS Safety Report 19448187 (Version 5)
Quarter: 2022Q3

REPORT INFORMATION
  Report Type: Report from Study
  Country: CA (occurrence: CA)
  Receive Date: 20210622
  Receipt Date: 20220926
  Transmission Date: 20221027
  Serious: Yes (Hospitalization)
  Sender: FDA-Public Use
  Company Number: CA-MYLANLABS-2021M1032147

PATIENT
  Age: 64 Year
  Sex: Female
  Weight: 54.5 kg

DRUGS (4)
  1. OGIVRI [Suspect]
     Active Substance: TRASTUZUMAB-DKST
     Indication: Breast cancer metastatic
     Dosage: 325 MILLIGRAM
     Route: 065
     Dates: start: 20210505
  2. OGIVRI [Suspect]
     Active Substance: TRASTUZUMAB-DKST
     Dosage: 420 MILLIGRAM, Q3W
     Route: 042
     Dates: start: 20210505
  3. OGIVRI [Suspect]
     Active Substance: TRASTUZUMAB-DKST
     Dosage: 376 MILLIGRAM
     Route: 042
     Dates: start: 20210505
  4. OGIVRI [Suspect]
     Active Substance: TRASTUZUMAB-DKST
     Dosage: 268 MILLIGRAM, Q3W
     Route: 042
     Dates: start: 20210505

REACTIONS (11)
  - Femur fracture [Unknown]
  - Fall [Unknown]
  - Hospitalisation [Unknown]
  - Weight decreased [Unknown]
  - Rhinorrhoea [Unknown]
  - Retching [Unknown]
  - Dizziness [Not Recovered/Not Resolved]
  - Nausea [Recovered/Resolved]
  - Vomiting [Recovered/Resolved]
  - Diarrhoea [Recovered/Resolved]
  - Cough [Unknown]

NARRATIVE: CASE EVENT DATE: 20210506
